FAERS Safety Report 11260862 (Version 1)
Quarter: 2015Q3

REPORT INFORMATION
  Report Type: Spontaneous
  Country: US (occurrence: US)
  Receive Date: 20150710
  Receipt Date: 20150710
  Transmission Date: 20151125
  Serious: Yes (Hospitalization, Other)
  Sender: FDA-Public Use
  Company Number: US-GLAXOSMITHKLINE-US2015098324

PATIENT
  Age: 60 Year
  Sex: Male

DRUGS (6)
  1. ESCITALOPRAM [Suspect]
     Active Substance: ESCITALOPRAM OXALATE
  2. BUPROPION. [Suspect]
     Active Substance: BUPROPION
  3. VALPROIC ACID. [Suspect]
     Active Substance: VALPROIC ACID
  4. RISPERIDONE. [Suspect]
     Active Substance: RISPERIDONE
  5. ATORVASTATIN [Concomitant]
     Active Substance: ATORVASTATIN
  6. FENTANYL. [Suspect]
     Active Substance: FENTANYL

REACTIONS (1)
  - Neuroleptic malignant syndrome [Recovered/Resolved]
